FAERS Safety Report 9701954 (Version 1)
Quarter: 2013Q4

REPORT INFORMATION
  Report Type: Spontaneous
  Country: US (occurrence: US)
  Receive Date: 20131121
  Receipt Date: 20131121
  Transmission Date: 20140711
  Serious: Yes (Other)
  Sender: FDA-Public Use
  Company Number: US-INCYTE CORPORATION-2013IN002712

PATIENT
  Age: 53 Year
  Sex: Male

DRUGS (13)
  1. JAKAFI [Suspect]
     Indication: MYELOFIBROSIS
     Dosage: 15 MG, BID
     Route: 048
     Dates: start: 2013, end: 20131114
  2. DULCOLAX                           /00064401/ [Concomitant]
  3. MIRALAX                            /00754501/ [Concomitant]
  4. PERCOCET                           /00446701/ [Concomitant]
  5. ZOFRAN                             /00955301/ [Concomitant]
  6. ROBAXIN [Concomitant]
  7. PREDNISONE [Concomitant]
  8. ALLOPURINOL [Concomitant]
  9. LASIX                              /00032601/ [Concomitant]
  10. POTASSIUM [Concomitant]
  11. XOPENEX [Concomitant]
  12. ASPIRIN [Concomitant]
     Dosage: 325 MG, QD
     Route: 065
  13. ALBUTEROL                          /00139501/ [Concomitant]

REACTIONS (3)
  - Muscle haemorrhage [Not Recovered/Not Resolved]
  - Haemoglobin decreased [Not Recovered/Not Resolved]
  - Contusion [Not Recovered/Not Resolved]
